FAERS Safety Report 4532726-3 (Version None)
Quarter: 2004Q4

REPORT INFORMATION
  Report Type: 
  Country: None (occurrence: None)
  Receive Date: 20041220
  Receipt Date: 20041220
  Transmission Date: 20050328
  Serious: Yes (Other)
  Sender: FDA-Public Use
  Company Number: None

PATIENT

DRUGS (1)
  1. ULTRA 300 [Suspect]
     Indication: COMPUTERISED TOMOGRAM
     Dosage: 100 CC

REACTIONS (1)
  - URTICARIA [None]
